FAERS Safety Report 15220895 (Version 2)
Quarter: 2021Q1

REPORT INFORMATION
  Report Type: Report from Study
  Country: US (occurrence: US)
  Receive Date: 20180731
  Receipt Date: 20210326
  Transmission Date: 20210419
  Serious: Yes (Hospitalization)
  Sender: FDA-Public Use
  Company Number: US-009507513-1807USA002323

PATIENT
  Sex: Female

DRUGS (2)
  1. JANUVIA [Suspect]
     Active Substance: SITAGLIPTIN PHOSPHATE
     Dosage: HALF OF 100MG TABLET, DAILY
  2. JANUVIA [Suspect]
     Active Substance: SITAGLIPTIN PHOSPHATE
     Dosage: 50 MILLIGRAM, ONCE DAILY
     Route: 048

REACTIONS (4)
  - Vomiting [Unknown]
  - No adverse event [Unknown]
  - Abdominal pain upper [Unknown]
  - Wrong technique in product usage process [Unknown]
